FAERS Safety Report 6323635-8 (Version None)
Quarter: 2009Q3

REPORT INFORMATION
  Report Type: 
  Country: None (occurrence: None)
  Receive Date: 20090824
  Receipt Date: 20090608
  Transmission Date: 20100115
  Serious: No
  Sender: FDA-Public Use
  Company Number: US-ABBOTT-09P-163-0578693-00

PATIENT
  Sex: Female
  Weight: 51.756 kg

DRUGS (8)
  1. NIASPAN [Suspect]
     Indication: BLOOD CHOLESTEROL INCREASED
     Route: 048
     Dates: start: 20090602
  2. CLONIDINE [Concomitant]
     Indication: HYPERTENSION
     Route: 048
  3. DILTIAZEM [Concomitant]
     Indication: HYPERTENSION
     Route: 048
  4. LASIX [Concomitant]
     Indication: DIURETIC THERAPY
     Route: 048
  5. LISINOPRIL [Concomitant]
     Indication: HYPERTENSION
     Route: 048
  6. LEVAMIR INSULIN [Concomitant]
     Indication: DIABETES MELLITUS
     Route: 058
  7. WARFARIN [Concomitant]
     Indication: ATRIAL FIBRILLATION
     Dosage: PER INR DAILY
     Route: 048
  8. ZETIA [Concomitant]
     Indication: DRUG USE FOR UNKNOWN INDICATION
     Route: 048

REACTIONS (3)
  - CHILLS [None]
  - DIZZINESS [None]
  - HYPERHIDROSIS [None]
